FAERS Safety Report 7368467-7 (Version None)
Quarter: 2011Q1

REPORT INFORMATION
  Report Type: 
  Country: None (occurrence: None)
  Receive Date: 20110323
  Receipt Date: 20110309
  Transmission Date: 20110831
  Serious: Yes (Hospitalization)
  Sender: FDA-Public Use
  Company Number: JP-JNJFOC-20101206078

PATIENT
  Age: 41 Year
  Sex: Male
  Weight: 55 kg

DRUGS (10)
  1. DOVONEX [Concomitant]
     Indication: PSORIATIC ARTHROPATHY
  2. REMICADE [Suspect]
     Indication: PSORIATIC ARTHROPATHY
     Route: 042
  3. REMICADE [Suspect]
     Route: 042
  4. TALION [Concomitant]
     Indication: PROPHYLAXIS
     Route: 048
  5. LOXONIN [Concomitant]
     Indication: PROPHYLAXIS
     Route: 048
  6. REMICADE [Suspect]
     Route: 042
  7. REMICADE [Suspect]
     Route: 042
  8. ANTEBATE [Concomitant]
     Indication: PSORIATIC ARTHROPATHY
     Dosage: START DATE BEFORE INFLIXIMAB THERAPY
  9. OXAROL [Concomitant]
     Indication: PSORIATIC ARTHROPATHY
  10. CALONAL [Concomitant]
     Indication: PROPHYLAXIS
     Route: 048

REACTIONS (7)
  - INFUSION RELATED REACTION [None]
  - CONJUNCTIVAL HYPERAEMIA [None]
  - ARTHRALGIA [None]
  - FLUSHING [None]
  - PALPITATIONS [None]
  - HYPOAESTHESIA [None]
  - PSORIASIS [None]
